FAERS Safety Report 6767913-7 (Version None)
Quarter: 2010Q2

REPORT INFORMATION
  Report Type: 
  Country: None (occurrence: None)
  Receive Date: 20100610
  Receipt Date: 20100527
  Transmission Date: 20101027
  Serious: Yes (Hospitalization)
  Sender: FDA-Public Use
  Company Number: DSJ-2010-08839

PATIENT
  Age: 27 Year
  Sex: Male

DRUGS (8)
  1. OLMESARTAN MEDOXOMIL [Suspect]
     Indication: DRUG USE FOR UNKNOWN INDICATION
     Dosage: 30 MG, PER ORAL
     Route: 048
  2. INDAPAMIDE [Suspect]
     Indication: DRUG USE FOR UNKNOWN INDICATION
     Dosage: 1 MG PER ORAL
     Route: 048
  3. ALLOPURINOL [Suspect]
     Indication: DRUG USE FOR UNKNOWN INDICATION
     Dosage: 50 MG, PER ORAL
  4. MIGLITOL [Suspect]
     Indication: TYPE 2 DIABETES MELLITUS
     Dosage: 150 MG, PER ORAL
     Route: 048
     Dates: start: 20091120, end: 20091121
  5. SODIUM BICARBONATE [Concomitant]
  6. LOSARTAN POTASSIUM [Concomitant]
  7. KREMEZIN (CHARCOAL, ACTIVATED) [Concomitant]
  8. HUMALOG [Concomitant]

REACTIONS (15)
  - ABDOMINAL PAIN [None]
  - CONDITION AGGRAVATED [None]
  - DEHYDRATION [None]
  - DIABETES MELLITUS INADEQUATE CONTROL [None]
  - DIARRHOEA [None]
  - DRUG LEVEL ABOVE THERAPEUTIC [None]
  - DRY SKIN [None]
  - HEPATIC STEATOSIS [None]
  - KETOACIDOSIS [None]
  - PAIN IN EXTREMITY [None]
  - RENAL DISORDER [None]
  - RENAL FAILURE ACUTE [None]
  - RHABDOMYOLYSIS [None]
  - THIRST [None]
  - TONGUE DRY [None]
